FAERS Safety Report 7541660-6 (Version None)
Quarter: 2011Q2

REPORT INFORMATION
  Report Type: 
  Country: None (occurrence: None)
  Receive Date: 20110613
  Receipt Date: 20110531
  Transmission Date: 20111010
  Serious: Yes (Hospitalization)
  Sender: FDA-Public Use
  Company Number: JP-JNJFOC-20110602178

PATIENT
  Sex: Male
  Weight: 70.9 kg

DRUGS (7)
  1. METHOTREXATE [Concomitant]
     Route: 048
     Dates: start: 20101103, end: 20110525
  2. KARY UNI [Concomitant]
     Route: 031
     Dates: start: 20100830
  3. GOLIMUMAB [Suspect]
     Route: 058
     Dates: start: 20090130
  4. GOLIMUMAB [Suspect]
     Indication: PRODUCT USED FOR UNKNOWN INDICATION
     Route: 058
     Dates: start: 20101112
  5. RABEPRAZOLE SODIUM [Concomitant]
     Route: 048
  6. DEPAS [Concomitant]
     Route: 048
     Dates: start: 20091211
  7. GOLIMUMAB [Suspect]
     Route: 058
     Dates: start: 20110421

REACTIONS (1)
  - PERIODONTAL INFECTION [None]
